FAERS Safety Report 8857595 (Version 1)
Quarter: 2012Q4

REPORT INFORMATION
  Report Type: 
  Country: SE (occurrence: SE)
  Receive Date: 20121024
  Receipt Date: 20121024
  Transmission Date: 20130627
  Serious: Yes (Hospitalization, Other)
  Sender: FDA-Public Use
  Company Number: SE-PFIZER INC-2012260172

PATIENT
  Age: 66 Year
  Sex: Female

DRUGS (2)
  1. TOVIAZ [Suspect]
     Indication: HYPERTONIC BLADDER
     Dosage: 4 mg, UNK
     Route: 048
     Dates: start: 201109, end: 20120119
  2. TOVIAZ [Suspect]
     Indication: URINARY RETENTION

REACTIONS (3)
  - Wheezing [Not Recovered/Not Resolved]
  - Cardiac fibrillation [Not Recovered/Not Resolved]
  - Extrasystoles [Not Recovered/Not Resolved]
